FAERS Safety Report 22003679 (Version 1)
Quarter: 2023Q1

REPORT INFORMATION
  Report Type: Spontaneous
  Country: US (occurrence: US)
  Receive Date: 20230217
  Receipt Date: 20230217
  Transmission Date: 20230418
  Serious: Yes (Other)
  Sender: FDA-Public Use
  Company Number: US-002147023-NVSC2023US031872

PATIENT

DRUGS (1)
  1. KYMRIAH [Suspect]
     Active Substance: TISAGENLECLEUCEL
     Indication: Follicular lymphoma
     Dosage: UNK, ONCE/SINGLE
     Route: 042

REACTIONS (3)
  - Malignant neoplasm progression [Unknown]
  - Follicular lymphoma [Unknown]
  - Therapy partial responder [Unknown]
